FAERS Safety Report 8491847-3 (Version None)
Quarter: 2012Q3

REPORT INFORMATION
  Report Type: 
  Country: None (occurrence: None)
  Receive Date: 20120706
  Receipt Date: 20110718
  Transmission Date: 20120928
  Serious: No
  Sender: FDA-Public Use
  Company Number: US-GLAXOSMITHKLINE-A0937072A

PATIENT
  Age: 66 Year
  Sex: Female

DRUGS (5)
  1. CARVEDILOL [Concomitant]
  2. FLOVENT [Suspect]
     Indication: EMPHYSEMA
     Dosage: 1PUFF TWICE PER DAY
     Route: 055
     Dates: start: 20110601
  3. SIMVASTATIN [Concomitant]
  4. TAMSULOSIN HCL [Concomitant]
  5. CLONAZEPAM [Concomitant]

REACTIONS (2)
  - DYSPNOEA [None]
  - DRUG INEFFECTIVE [None]
